FAERS Safety Report 12990643 (Version 1)
Quarter: 2016Q4

REPORT INFORMATION
  Report Type: Report from Study
  Country: US (occurrence: US)
  Receive Date: 20161201
  Receipt Date: 20161201
  Transmission Date: 20170207
  Serious: Yes (Death, Hospitalization)
  Sender: FDA-Public Use
  Company Number: US-JNJFOC-20161130643

PATIENT
  Age: 77 Year
  Sex: Female
  Weight: 102 kg

DRUGS (4)
  1. LYRICA [Suspect]
     Active Substance: PREGABALIN
     Indication: HERPES ZOSTER
     Route: 065
     Dates: start: 2016
  2. CYMBALTA [Concomitant]
     Active Substance: DULOXETINE HYDROCHLORIDE
     Indication: HERPES ZOSTER
     Route: 065
     Dates: start: 2016
  3. IMBRUVICA [Suspect]
     Active Substance: IBRUTINIB
     Indication: CHRONIC LYMPHOCYTIC LEUKAEMIA REFRACTORY
     Route: 048
     Dates: start: 2015, end: 2016
  4. TYLENOL [Concomitant]
     Active Substance: ACETAMINOPHEN
     Indication: HERPES ZOSTER
     Route: 065

REACTIONS (11)
  - Thrombosis [Fatal]
  - Asthenia [Fatal]
  - Cerebrovascular accident [Fatal]
  - Vertigo [Fatal]
  - Incorrect dose administered [Recovered/Resolved]
  - Dysphagia [Fatal]
  - Infection [Unknown]
  - Paralysis [Unknown]
  - Diplopia [Fatal]
  - Herpes zoster [Unknown]
  - Off label use [Recovered/Resolved]

NARRATIVE: CASE EVENT DATE: 2015
